FAERS Safety Report 7450146-9 (Version None)
Quarter: 2011Q2

REPORT INFORMATION
  Report Type: 
  Country: None (occurrence: None)
  Receive Date: 20110428
  Receipt Date: 20110428
  Transmission Date: 20111010
  Serious: Yes (Death)
  Sender: FDA-Public Use
  Company Number: None

PATIENT
  Age: 55 Year
  Sex: Male

DRUGS (1)
  1. REVLIMID [Suspect]
     Indication: MULTIPLE MYELOMA
     Dosage: DAILY X21D/28D ORALLY
     Route: 048
     Dates: start: 20091109, end: 20100201

REACTIONS (3)
  - MULTIPLE MYELOMA [None]
  - DISEASE PROGRESSION [None]
  - PANCYTOPENIA [None]
